FAERS Safety Report 26148221 (Version 1)
Quarter: 2025Q4

REPORT INFORMATION
  Report Type: Spontaneous
  Country: US (occurrence: US)
  Receive Date: 20251212
  Receipt Date: 20251212
  Transmission Date: 20260117
  Serious: Yes (Death)
  Sender: MERCK SHARP & DOHME LLC
  Company Number: US-009507513-2358655

PATIENT
  Sex: Female

DRUGS (1)
  1. WELIREG [Suspect]
     Active Substance: BELZUTIFAN
     Route: 048

REACTIONS (2)
  - Death [Fatal]
  - Ill-defined disorder [Unknown]
